FAERS Safety Report 8434829 (Version 7)
Quarter: 2014Q3

REPORT INFORMATION
  Report Type: Spontaneous
  Country: FR (occurrence: None)
  Receive Date: 20120215
  Receipt Date: 20140820
  Transmission Date: 20150326
  Serious: Yes (Life-Threatening, Other)
  Sender: FDA-Public Use
  Company Number: JPI-P-012522

PATIENT
  Age: 45 Year
  Sex: Male

DRUGS (8)
  1. XYREM [Suspect]
     Active Substance: SODIUM OXYBATE
     Indication: CATAPLEXY
     Dosage: (2.25 GM,2 IN 1 D)
     Route: 048
     Dates: start: 20070201, end: 200702
  2. SELEGILINE [Concomitant]
     Active Substance: SELEGILINE
  3. XYREM [Suspect]
     Active Substance: SODIUM OXYBATE
     Indication: NARCOLEPSY
     Dosage: (2.25 GM,2 IN 1 D)
     Route: 048
     Dates: start: 20070201, end: 200702
  4. CLONAZEPAM. [Concomitant]
     Active Substance: CLONAZEPAM
  5. METHYLPHENIDATE [Concomitant]
     Active Substance: METHYLPHENIDATE
  6. CLOMIPRAMINE HYDROCHLORIDE. [Suspect]
     Active Substance: CLOMIPRAMINE HYDROCHLORIDE
     Indication: CATAPLEXY
     Route: 048
     Dates: end: 2007
  7. CLOMIPRAMINE HYDROCHLORIDE. [Suspect]
     Active Substance: CLOMIPRAMINE HYDROCHLORIDE
     Indication: NARCOLEPSY
     Route: 048
     Dates: end: 2007
  8. CLOMIPRAMINE HYDROCHLORIDE. [Suspect]
     Active Substance: CLOMIPRAMINE HYDROCHLORIDE
     Route: 048
     Dates: end: 2007

REACTIONS (9)
  - Cataplexy [None]
  - Myocardial infarction [None]
  - Enuresis [None]
  - Myalgia [None]
  - Hyperthermia [None]
  - Disease recurrence [None]
  - Urinary incontinence [None]
  - Asthenia [None]
  - Ejaculation failure [None]

NARRATIVE: CASE EVENT DATE: 2007
